FAERS Safety Report 4522351-2 (Version None)
Quarter: 2004Q4

REPORT INFORMATION
  Report Type: 
  Country: None (occurrence: None)
  Receive Date: 20041209
  Receipt Date: 20011031
  Transmission Date: 20050328
  Serious: Yes (Hospitalization)
  Sender: FDA-Public Use
  Company Number: FR-GLAXOSMITHKLINE-B0125952A

PATIENT
  Sex: Female
  Weight: 3.2 kg

DRUGS (13)
  1. RETROVIR [Suspect]
     Indication: ANTIVIRAL PROPHYLAXIS
     Dates: start: 20001013, end: 20001013
  2. VIDEX [Suspect]
     Indication: HIV INFECTION
     Dosage: 400MG PER DAY
  3. VIRACEPT [Suspect]
     Indication: HIV INFECTION
     Dosage: 2500MG TWICE PER DAY
  4. ZERIT [Suspect]
     Indication: HIV INFECTION
  5. CRIXIVAN [Suspect]
     Indication: HIV INFECTION
  6. ZERIT [Concomitant]
     Indication: ANTIVIRAL PROPHYLAXIS
  7. GYNOPEVARYL [Concomitant]
  8. LEXOMIL [Concomitant]
  9. POLARAMINE [Concomitant]
  10. LOMEXIN [Concomitant]
  11. DIPROSONE [Concomitant]
  12. IRON [Concomitant]
  13. MULTIVITAMIN [Concomitant]

REACTIONS (24)
  - ABDOMINAL DISTENSION [None]
  - ALANINE AMINOTRANSFERASE INCREASED [None]
  - ASPARTATE AMINOTRANSFERASE INCREASED [None]
  - BLOOD KETONE BODY DECREASED [None]
  - BLOOD LACTATE DEHYDROGENASE INCREASED [None]
  - BLOOD LACTIC ACID INCREASED [None]
  - CONSTIPATION [None]
  - DIARRHOEA [None]
  - DIARRHOEA NEONATAL [None]
  - DRUG EXPOSURE DURING PREGNANCY [None]
  - GASTROOESOPHAGEAL REFLUX DISEASE [None]
  - HYPERTRIGLYCERIDAEMIA [None]
  - LABORATORY TEST ABNORMAL [None]
  - LACTATE PYRUVATE RATIO INCREASED [None]
  - MACROCYTOSIS [None]
  - MASTITIS [None]
  - METABOLIC DISORDER [None]
  - METABOLIC FUNCTION TEST [None]
  - NEONATAL DISORDER [None]
  - NEUTROPENIA [None]
  - NEUTROPENIA NEONATAL [None]
  - PLATELET COUNT INCREASED [None]
  - RHINITIS [None]
  - THROMBOCYTOPENIA [None]
